FAERS Safety Report 8223944-1 (Version None)
Quarter: 2012Q1

REPORT INFORMATION
  Report Type: 
  Country: None (occurrence: None)
  Receive Date: 20120321
  Receipt Date: 20120316
  Transmission Date: 20120608
  Serious: Yes (Hospitalization, Other)
  Sender: FDA-Public Use
  Company Number: US-PFIZER INC-2012026808

PATIENT
  Sex: Female

DRUGS (14)
  1. CALCIUM WITH VITAMIN D [Concomitant]
     Dosage: 500 MG/ 20 INTL UNITS QD
     Route: 048
  2. FLONASE [Concomitant]
     Dosage: 50 MCG/SPRAY, 2 SPRAYS EACH NOSTRIL QD
  3. POTASSIUM CHLORIDE [Concomitant]
     Dosage: 20 MEQ, 1X/DAY
     Route: 048
  4. BENAZEPRIL [Concomitant]
     Dosage: 10 MG, 2 TABS IN THE AM AND 1 TAB IN THE PM
  5. SIMVASTATIN [Concomitant]
     Dosage: 40 MG, 1X/DAY
  6. WARFARIN [Concomitant]
     Dosage: 5 MG, 1 TAB 3 TIMES A WEEK, 1.5 TABS 3 TIMES A WEEK
  7. LIPITOR [Suspect]
     Indication: HYPERLIPIDAEMIA
     Dosage: 40 MG, ONCE DAILY
     Route: 048
  8. ASPIRIN [Concomitant]
     Dosage: 81 MG, 1X/DAY
  9. CARDIZEM CD [Concomitant]
     Dosage: 240 MG, 1X/DAY
     Route: 048
  10. GABAPENTIN [Concomitant]
     Dosage: 300 MG, QHS
     Route: 048
  11. FUROSEMIDE [Concomitant]
     Dosage: 20 MG, 1X/DAY
     Route: 048
  12. MECLIZINE HYDROCHLORIDE [Concomitant]
     Dosage: 12.5 MG EVERY 8 HOURS AS NEEDED
  13. CRESTOR [Concomitant]
     Dosage: 10 MG, QHS
  14. SYNTHROID [Concomitant]
     Dosage: 25 UG, 1X/DAY

REACTIONS (6)
  - PAIN [None]
  - HYPOKINESIA [None]
  - DYSSTASIA [None]
  - DYSPNOEA [None]
  - ARTHRALGIA [None]
  - CARDIAC FAILURE [None]
